FAERS Safety Report 7677092-X (Version None)
Quarter: 2011Q3

REPORT INFORMATION
  Report Type: 
  Country: None (occurrence: None)
  Receive Date: 20110811
  Receipt Date: 20110801
  Transmission Date: 20111222
  Serious: Yes (Hospitalization)
  Sender: FDA-Public Use
  Company Number: US-JNJFOC-20080103363

PATIENT
  Sex: Female
  Weight: 62.7 kg

DRUGS (4)
  1. PREDNISONE [Concomitant]
  2. INFLIXIMAB [Suspect]
     Route: 042
     Dates: start: 20071217
  3. INFLIXIMAB [Suspect]
     Indication: INFLAMMATORY BOWEL DISEASE
     Route: 042
     Dates: start: 20070308
  4. INFLIXIMAB [Suspect]
     Dosage: TOTAL 6 DOSES
     Route: 042
     Dates: start: 20071126

REACTIONS (1)
  - COLITIS ULCERATIVE [None]
